FAERS Safety Report 17071709 (Version 4)
Quarter: 2020Q1

REPORT INFORMATION
  Report Type: Spontaneous
  Country: US (occurrence: US)
  Receive Date: 20191125
  Receipt Date: 20200102
  Transmission Date: 20200409
  Serious: No
  Sender: FDA-Public Use
  Company Number: US-BAYER-2019-209356

PATIENT
  Age: 67 Year
  Sex: Male

DRUGS (4)
  1. NEXAVAR [Suspect]
     Active Substance: SORAFENIB
     Indication: B-CELL LYMPHOMA
     Dosage: 200 MG, BID
     Dates: start: 201912
  2. NEXAVAR [Suspect]
     Active Substance: SORAFENIB
     Indication: B-CELL LYMPHOMA
     Dosage: 400 MG, BID
     Dates: start: 20191118
  3. NEXAVAR [Suspect]
     Active Substance: SORAFENIB
     Indication: B-CELL LYMPHOMA
     Dosage: 200 MG, BID
     Route: 048
     Dates: start: 2019
  4. NEXAVAR [Suspect]
     Active Substance: SORAFENIB
     Indication: B-CELL LYMPHOMA STAGE II
     Dosage: 400 MG, BID
     Dates: start: 20191119

REACTIONS (12)
  - Skin fissures [None]
  - Pain of skin [None]
  - Abdominal pain upper [Not Recovered/Not Resolved]
  - Skin laceration [None]
  - Product use in unapproved indication [None]
  - Blister [Recovered/Resolved]
  - Initial insomnia [None]
  - Hypertension [None]
  - Off label use [None]
  - Abdominal pain upper [Unknown]
  - Hypertension [None]
  - Abdominal pain upper [None]

NARRATIVE: CASE EVENT DATE: 20191119
